FAERS Safety Report 17623477 (Version 2)
Quarter: 2020Q2

REPORT INFORMATION
  Report Type: Spontaneous
  Country: US (occurrence: US)
  Receive Date: 20200403
  Receipt Date: 20200417
  Transmission Date: 20200713
  Serious: No
  Sender: FDA-Public Use
  Company Number: US-GILEAD-2020-0456886

PATIENT
  Age: 44 Year
  Sex: Male

DRUGS (21)
  1. DARUNAVIR [Concomitant]
     Active Substance: DARUNAVIR
  2. MULTIVITAMINS;MINERALS [Concomitant]
  3. GABAPENTIN. [Concomitant]
     Active Substance: GABAPENTIN
  4. ISENTRESS [Concomitant]
     Active Substance: RALTEGRAVIR POTASSIUM
  5. MARIJUANA [Concomitant]
     Active Substance: CANNABIS SATIVA SUBSP. INDICA TOP
  6. MOTRIN [Concomitant]
     Active Substance: IBUPROFEN
  7. PROVENTIL HFA [SALBUTAMOL] [Concomitant]
  8. ZOFRAN [Concomitant]
     Active Substance: ONDANSETRON HYDROCHLORIDE
  9. ASCORBIC ACID. [Concomitant]
     Active Substance: ASCORBIC ACID
  10. PENTAMIDINE [Concomitant]
     Active Substance: PENTAMIDINE
  11. SITAGLIPTIN [Concomitant]
     Active Substance: SITAGLIPTIN
  12. RALTEGRAVIR. [Concomitant]
     Active Substance: RALTEGRAVIR
  13. COLACE [Concomitant]
     Active Substance: DOCUSATE SODIUM
  14. REMERON [Concomitant]
     Active Substance: MIRTAZAPINE
  15. NYSTATIN. [Concomitant]
     Active Substance: NYSTATIN
  16. RITONAVIR. [Concomitant]
     Active Substance: RITONAVIR
  17. DEPO TESTOSTERONE [Concomitant]
     Active Substance: TESTOSTERONE
  18. ETHAMBUTOL [Concomitant]
     Active Substance: ETHAMBUTOL HYDROCHLORIDE
  19. TRUVADA [Suspect]
     Active Substance: EMTRICITABINE\TENOFOVIR DISOPROXIL FUMARATE
     Indication: HIV INFECTION
     Dosage: 1 DOSAGE FORM, QD
     Route: 048
     Dates: start: 2011, end: 2016
  20. DESCOVY [Concomitant]
     Active Substance: EMTRICITABINE\TENOFOVIR ALAFENAMIDE FUMARATE
  21. RIFAMPIN. [Concomitant]
     Active Substance: RIFAMPIN

REACTIONS (3)
  - Economic problem [Unknown]
  - Tooth loss [Not Recovered/Not Resolved]
  - Bone density decreased [Unknown]

NARRATIVE: CASE EVENT DATE: 201308
